FAERS Safety Report 8911503 (Version 2)
Quarter: 2012Q4

REPORT INFORMATION
  Report Type: 
  Country: IE (occurrence: IE)
  Receive Date: 20121116
  Receipt Date: 20121210
  Transmission Date: 20130627
  Serious: Yes (Other)
  Sender: FDA-Public Use
  Company Number: IE-JNJFOC-20121104649

PATIENT
  Sex: Female

DRUGS (8)
  1. SIMPONI [Suspect]
     Indication: PSORIATIC ARTHROPATHY
     Route: 058
     Dates: start: 20111222
  2. ASPIRIN [Suspect]
     Indication: PRODUCT USED FOR UNKNOWN INDICATION
     Route: 065
  3. PREDNISOLONE [Concomitant]
     Route: 065
  4. ALL OTHER THERAPEUTICS [Concomitant]
     Route: 065
  5. FOSAVANCE [Concomitant]
     Route: 065
  6. GALFER [Concomitant]
     Route: 065
  7. ARTHROTEC [Concomitant]
     Route: 065
  8. NEXIUM [Concomitant]
     Route: 065

REACTIONS (1)
  - Vasculitis [Recovering/Resolving]
